FAERS Safety Report 18269834 (Version 2)
Quarter: 2021Q1

REPORT INFORMATION
  Report Type: Report from Study
  Country: None (occurrence: IT)
  Receive Date: 20200915
  Receipt Date: 20210225
  Transmission Date: 20210419
  Serious: Yes (Hospitalization)
  Sender: FDA-Public Use
  Company Number: IT-ABBVIE-20P-083-3557604-00

PATIENT
  Age: 51 Year
  Sex: Male
  Weight: 107 kg

DRUGS (71)
  1. LAMIVUDINE. [Concomitant]
     Active Substance: LAMIVUDINE
     Indication: HEPATITIS B
     Route: 048
     Dates: start: 20200528
  2. OXYCODONE [Concomitant]
     Active Substance: OXYCODONE
     Route: 048
     Dates: start: 20200822, end: 20200906
  3. TEICOPLANINE [Concomitant]
     Active Substance: TEICOPLANIN
     Route: 050
     Dates: start: 20200825
  4. DAFLON [Concomitant]
     Indication: HAEMORRHOIDS
     Route: 048
     Dates: start: 20200818
  5. PLATELETS [Concomitant]
     Active Substance: HUMAN PLATELET, ALLOGENIC
     Dates: start: 20200824, end: 20200824
  6. PLATELETS [Concomitant]
     Active Substance: HUMAN PLATELET, ALLOGENIC
     Dates: start: 20200909, end: 20200909
  7. MACROGOL [Concomitant]
     Active Substance: POLYETHYLENE GLYCOLS
     Dates: start: 20200826, end: 20200831
  8. TRAMADOL. [Concomitant]
     Active Substance: TRAMADOL
     Route: 042
     Dates: start: 20200830, end: 20200830
  9. ANTITHROMBIN III [Concomitant]
     Active Substance: ANTITHROMBIN III HUMAN
     Indication: ANTITHROMBIN III DECREASED
     Route: 042
     Dates: start: 20200822, end: 20200822
  10. INSULINE [Concomitant]
     Active Substance: INSULIN NOS
     Indication: HYPERGLYCAEMIA
     Dates: start: 20200718
  11. PANTOPRAZOLE [Concomitant]
     Active Substance: PANTOPRAZOLE
     Indication: GASTROINTESTINAL DISORDER PROPHYLAXIS
     Route: 048
     Dates: start: 20200528
  12. DELTACORTENE [Concomitant]
     Active Substance: PREDNISONE
     Indication: PRODUCT USED FOR UNKNOWN INDICATION
     Route: 048
     Dates: start: 20200528, end: 20200821
  13. PACKED RED CELLS [Concomitant]
     Active Substance: HUMAN RED BLOOD CELL
     Dates: start: 20200820, end: 20200820
  14. PACKED RED CELLS [Concomitant]
     Active Substance: HUMAN RED BLOOD CELL
     Dates: start: 20200824, end: 20200824
  15. PACKED RED CELLS [Concomitant]
     Active Substance: HUMAN RED BLOOD CELL
     Dates: start: 20200907, end: 20200907
  16. PLATELETS [Concomitant]
     Active Substance: HUMAN PLATELET, ALLOGENIC
     Dates: start: 20200813, end: 20200813
  17. NYSTATIN. [Concomitant]
     Active Substance: NYSTATIN
     Indication: ORAL INFECTION
     Dates: start: 20200528
  18. URBASON [Concomitant]
     Active Substance: METHYLPREDNISOLONE
     Route: 042
     Dates: start: 20200822, end: 20200825
  19. MORPHINE [Concomitant]
     Active Substance: MORPHINE
     Indication: HAEMORRHOIDS
     Route: 048
     Dates: start: 20200528
  20. VASELINE PURE [Concomitant]
     Active Substance: PETROLATUM
     Indication: CONSTIPATION
     Route: 048
     Dates: start: 20200826, end: 20200906
  21. MEROPENEM. [Concomitant]
     Active Substance: MEROPENEM
     Indication: FEBRILE NEUTROPENIA
     Route: 042
     Dates: start: 20200821
  22. ONDANSETRON [Concomitant]
     Active Substance: ONDANSETRON
     Indication: PRODUCT USED FOR UNKNOWN INDICATION
     Route: 048
     Dates: start: 20200731, end: 20200821
  23. NALOXONE [Concomitant]
     Active Substance: NALOXONE
     Route: 048
     Dates: start: 20200822, end: 20200906
  24. PACKED RED CELLS [Concomitant]
     Active Substance: HUMAN RED BLOOD CELL
     Dates: start: 20200921, end: 20200921
  25. PLATELETS [Concomitant]
     Active Substance: HUMAN PLATELET, ALLOGENIC
     Dates: start: 20200916, end: 20200916
  26. MACROGOL [Concomitant]
     Active Substance: POLYETHYLENE GLYCOLS
     Indication: CONSTIPATION
     Dates: start: 20200804, end: 20200812
  27. TRAMADOL. [Concomitant]
     Active Substance: TRAMADOL
     Route: 042
     Dates: start: 20200824, end: 20200828
  28. LEVOFLOXACINE [Concomitant]
     Active Substance: LEVOFLOXACIN
     Indication: ANTIBIOTIC PROPHYLAXIS
     Route: 048
     Dates: start: 20200908
  29. SODIUM CHLORIDE. [Concomitant]
     Active Substance: SODIUM CHLORIDE
     Dates: start: 20200822, end: 20200824
  30. PARACETAMOL [Concomitant]
     Active Substance: ACETAMINOPHEN
     Indication: PYREXIA
     Route: 048
     Dates: start: 20200821, end: 20200822
  31. OXYCODONE [Concomitant]
     Active Substance: OXYCODONE
     Route: 048
     Dates: start: 20200811, end: 20200821
  32. ORAMORPH [Concomitant]
     Active Substance: MORPHINE SULFATE
     Indication: HAEMORRHOIDS
     Route: 048
     Dates: start: 20200528
  33. ALLOPURINOL. [Concomitant]
     Active Substance: ALLOPURINOL
     Indication: PROPHYLAXIS
     Route: 048
     Dates: start: 20200720, end: 20200823
  34. PACKED RED CELLS [Concomitant]
     Active Substance: HUMAN RED BLOOD CELL
     Dates: start: 20200817, end: 20200817
  35. PACKED RED CELLS [Concomitant]
     Active Substance: HUMAN RED BLOOD CELL
     Dates: start: 20200909, end: 20200909
  36. PLATELETS [Concomitant]
     Active Substance: HUMAN PLATELET, ALLOGENIC
     Indication: PRODUCT USED FOR UNKNOWN INDICATION
     Dates: start: 20200811, end: 20200811
  37. PLATELETS [Concomitant]
     Active Substance: HUMAN PLATELET, ALLOGENIC
     Dates: start: 20200818, end: 20200818
  38. PLATELETS [Concomitant]
     Active Substance: HUMAN PLATELET, ALLOGENIC
     Dates: start: 20200907, end: 20200907
  39. URBASON [Concomitant]
     Active Substance: METHYLPREDNISOLONE
     Route: 042
     Dates: start: 20200908
  40. OXYCODONE [Concomitant]
     Active Substance: OXYCODONE
     Indication: HAEMORRHOIDS
     Route: 048
     Dates: start: 20200528, end: 20200810
  41. ACICLOVIR [Concomitant]
     Active Substance: ACYCLOVIR
     Indication: PRODUCT USED FOR UNKNOWN INDICATION
     Route: 048
     Dates: start: 20200528
  42. TEICOPLANINE [Concomitant]
     Active Substance: TEICOPLANIN
     Indication: FEBRILE NEUTROPENIA
     Route: 050
     Dates: start: 20200821, end: 20200824
  43. TEICOPLANINE [Concomitant]
     Active Substance: TEICOPLANIN
     Route: 050
     Dates: start: 20200826, end: 20200830
  44. PACKED RED CELLS [Concomitant]
     Active Substance: HUMAN RED BLOOD CELL
     Dates: start: 20200829, end: 20200829
  45. PACKED RED CELLS [Concomitant]
     Active Substance: HUMAN RED BLOOD CELL
     Dates: start: 20200908, end: 20200908
  46. PLATELETS [Concomitant]
     Active Substance: HUMAN PLATELET, ALLOGENIC
     Dates: start: 20200903, end: 20200903
  47. SODIUM CHLORIDE. [Concomitant]
     Active Substance: SODIUM CHLORIDE
     Indication: HYPONATRAEMIA
     Dates: start: 20200908, end: 20200910
  48. VASELINE PURE [Concomitant]
     Active Substance: PETROLATUM
     Route: 048
     Dates: start: 20200910
  49. HYDROXYUREA. [Concomitant]
     Active Substance: HYDROXYUREA
     Indication: NEOPLASM MALIGNANT
     Dates: start: 20200928, end: 20201008
  50. VENETOCLAX. [Suspect]
     Active Substance: VENETOCLAX
     Indication: ACUTE MYELOID LEUKAEMIA
     Route: 048
     Dates: start: 20200723, end: 20200907
  51. SULFAMETOXAZOL + TRIMETOPRIM [Concomitant]
     Active Substance: SULFAMETHOXAZOLE\TRIMETHOPRIM
     Indication: ANTIFUNGAL PROPHYLAXIS
     Route: 048
     Dates: start: 20200528
  52. NALOXONE [Concomitant]
     Active Substance: NALOXONE
     Indication: HAEMORRHOIDS
     Route: 048
     Dates: start: 20200528, end: 20200810
  53. PACKED RED CELLS [Concomitant]
     Active Substance: HUMAN RED BLOOD CELL
     Indication: PRODUCT USED FOR UNKNOWN INDICATION
     Dates: start: 20200813, end: 20200813
  54. PACKED RED CELLS [Concomitant]
     Active Substance: HUMAN RED BLOOD CELL
     Dates: start: 20200822, end: 20200822
  55. POTASSIUM CHLORIDE. [Concomitant]
     Active Substance: POTASSIUM CHLORIDE
     Indication: HYPOKALAEMIA
     Dates: start: 20200804, end: 20200810
  56. TRAMADOL. [Concomitant]
     Active Substance: TRAMADOL
     Route: 042
     Dates: start: 20200829, end: 20200829
  57. URBASON [Concomitant]
     Active Substance: METHYLPREDNISOLONE
     Indication: PRODUCT USED FOR UNKNOWN INDICATION
     Route: 042
     Dates: start: 20200826, end: 20200831
  58. VASELINE PURE [Concomitant]
     Active Substance: PETROLATUM
     Route: 048
     Dates: start: 20200907, end: 20200907
  59. VASELINE PURE [Concomitant]
     Active Substance: PETROLATUM
     Route: 048
     Dates: start: 20200908, end: 20200909
  60. ANTITHROMBIN III [Concomitant]
     Active Substance: ANTITHROMBIN III HUMAN
     Route: 042
     Dates: start: 20200909, end: 20200911
  61. FUROSEMIDE. [Concomitant]
     Active Substance: FUROSEMIDE
     Indication: FLUID RETENTION
     Route: 048
     Dates: start: 20200528, end: 20200821
  62. DIAZEPAM. [Concomitant]
     Active Substance: DIAZEPAM
     Indication: INSOMNIA
     Route: 048
  63. NALOXONE [Concomitant]
     Active Substance: NALOXONE
     Route: 048
     Dates: start: 20200811, end: 20200821
  64. PLATELETS [Concomitant]
     Active Substance: HUMAN PLATELET, ALLOGENIC
     Dates: start: 20200822, end: 20200822
  65. PLATELETS [Concomitant]
     Active Substance: HUMAN PLATELET, ALLOGENIC
     Dates: start: 20200829, end: 20200829
  66. IDASANUTLIN. [Suspect]
     Active Substance: IDASANUTLIN
     Indication: ACUTE MYELOID LEUKAEMIA
     Route: 048
     Dates: start: 20200723
  67. PACKED RED CELLS [Concomitant]
     Active Substance: HUMAN RED BLOOD CELL
     Dates: start: 20200826, end: 20200826
  68. PLATELETS [Concomitant]
     Active Substance: HUMAN PLATELET, ALLOGENIC
     Dates: start: 20200827, end: 20200827
  69. TRAMADOL. [Concomitant]
     Active Substance: TRAMADOL
     Indication: HAEMORRHOIDS
     Route: 042
     Dates: start: 20200821, end: 20200823
  70. LEVOFLOXACINE [Concomitant]
     Active Substance: LEVOFLOXACIN
     Route: 048
     Dates: start: 20200811, end: 20200821
  71. ANTITHROMBIN III [Concomitant]
     Active Substance: ANTITHROMBIN III HUMAN
     Route: 042
     Dates: start: 20200908, end: 20200908

REACTIONS (1)
  - Arthralgia [Not Recovered/Not Resolved]

NARRATIVE: CASE EVENT DATE: 20200907
